FAERS Safety Report 19506324 (Version 1)
Quarter: 2021Q3

REPORT INFORMATION
  Report Type: Spontaneous
  Country: US (occurrence: US)
  Receive Date: 20210708
  Receipt Date: 20210708
  Transmission Date: 20211014
  Serious: Yes (Hospitalization)
  Sender: FDA-Public Use
  Company Number: None

PATIENT
  Age: 80 Year
  Sex: Female

DRUGS (3)
  1. ATORVASTATIN [Concomitant]
     Active Substance: ATORVASTATIN
  2. TADALAFIL. [Suspect]
     Active Substance: TADALAFIL
     Indication: PULMONARY ARTERIAL HYPERTENSION
     Route: 048
     Dates: start: 20190129
  3. OMEPRAZOLE, AMLODIPINE, LATANOPROST, BRIMONIDINE, METFORMIN [Concomitant]

REACTIONS (2)
  - Rectal polyp [None]
  - Rectal polypectomy [None]

NARRATIVE: CASE EVENT DATE: 20210705
